FAERS Safety Report 5130737-0 (Version None)
Quarter: 2006Q3

REPORT INFORMATION
  Report Type: 
  Country: None (occurrence: None)
  Receive Date: 20060829
  Receipt Date: 20060801
  Transmission Date: 20061208
  Serious: No
  Sender: FDA-Public Use
  Company Number: PHEH2006US09775

PATIENT
  Age: 44 Year
  Sex: Female

DRUGS (1)
  1. EXJADE [Suspect]
     Indication: ACUTE MYELOID LEUKAEMIA
     Dosage: ORAL
     Route: 048
     Dates: start: 20060523

REACTIONS (2)
  - ALOPECIA [None]
  - RASH ERYTHEMATOUS [None]
